FAERS Safety Report 7120659-8 (Version None)
Quarter: 2010Q4

REPORT INFORMATION
  Report Type: 
  Country: None (occurrence: None)
  Receive Date: 20101124
  Receipt Date: 20101001
  Transmission Date: 20110411
  Serious: Yes (Other)
  Sender: FDA-Public Use
  Company Number: US-BAYER-201020208NA

PATIENT
  Age: 29 Year
  Sex: Female
  Weight: 79 kg

DRUGS (11)
  1. YASMIN [Suspect]
     Indication: CONTRACEPTION
     Route: 048
     Dates: start: 20011027, end: 20040801
  2. OCELLA [Suspect]
     Indication: CONTRACEPTION
     Route: 048
     Dates: start: 20040801, end: 20090811
  3. UNKNOWN WOMEN'S VITAMINS [Concomitant]
  4. HAIR-SKIN-NAILS VITAMIN FORMULA [Concomitant]
  5. AZITHROMYCIN [Concomitant]
  6. MUPIROCIN [Concomitant]
  7. LEVAQUIN [Concomitant]
  8. NAPROXEN [Concomitant]
  9. XYZAL [Concomitant]
  10. OPITVAR [Concomitant]
  11. RIFAMPIN [Concomitant]

REACTIONS (7)
  - ABDOMINAL DISTENSION [None]
  - BILIARY DYSKINESIA [None]
  - ERUCTATION [None]
  - FLATULENCE [None]
  - GALLBLADDER INJURY [None]
  - HAEMATOCRIT DECREASED [None]
  - RED BLOOD CELL COUNT DECREASED [None]
